FAERS Safety Report 24968525 (Version 2)
Quarter: 2025Q1

REPORT INFORMATION
  Report Type: Spontaneous
  Country: IT (occurrence: IT)
  Receive Date: 20250214
  Receipt Date: 20250306
  Transmission Date: 20250408
  Serious: Yes (Other)
  Sender: AUROBINDO
  Company Number: IT-RBHC-20-24-ITA-RB-0018178

PATIENT
  Age: 44 Year
  Sex: Male

DRUGS (2)
  1. IBUPROFEN [Suspect]
     Active Substance: IBUPROFEN
     Indication: Pyrexia
     Route: 065
  2. COLCHICINE [Suspect]
     Active Substance: COLCHICINE
     Indication: Product used for unknown indication
     Route: 065

REACTIONS (9)
  - Granulomatosis with polyangiitis [Recovering/Resolving]
  - Lung opacity [Recovering/Resolving]
  - Pleural effusion [Recovering/Resolving]
  - Lymphadenopathy mediastinal [Recovering/Resolving]
  - Sinus congestion [Recovering/Resolving]
  - Nodule [Recovering/Resolving]
  - Haematuria [Recovering/Resolving]
  - Proteinuria [Recovering/Resolving]
  - Drug ineffective [Not Recovered/Not Resolved]
